FAERS Safety Report 18059573 (Version 5)
Quarter: 2020Q4

REPORT INFORMATION
  Report Type: Spontaneous
  Country: DE (occurrence: DE)
  Receive Date: 20200723
  Receipt Date: 20201106
  Transmission Date: 20210113
  Serious: Yes (Life-Threatening, Hospitalization, Other)
  Sender: FDA-Public Use
  Company Number: DE-PFIZER INC-2020278161

PATIENT
  Age: 71 Year
  Sex: Female

DRUGS (5)
  1. INSULINS AND ANALOGUES [Concomitant]
     Dosage: UNK
  2. RAMIPRIL. [Concomitant]
     Active Substance: RAMIPRIL
     Dosage: UNK
  3. METEX [METHOTREXATE SODIUM] [Suspect]
     Active Substance: METHOTREXATE SODIUM
     Indication: PSORIATIC ARTHROPATHY
     Dosage: 2.5 MG, WEEKLY
     Route: 048
     Dates: start: 20200703, end: 20200813
  4. INSULIN [Concomitant]
     Active Substance: INSULIN NOS
     Dosage: UNK
  5. XELJANZ [Suspect]
     Active Substance: TOFACITINIB CITRATE
     Indication: PSORIATIC ARTHROPATHY
     Dosage: 5 MG, 2X/DAY
     Route: 048
     Dates: start: 20200703, end: 20200714

REACTIONS (18)
  - Pancytopenia [Recovering/Resolving]
  - Thrombocytopenia [Unknown]
  - Jaundice [Unknown]
  - Diarrhoea [Recovered/Resolved]
  - Stomatitis [Unknown]
  - Gingival bleeding [Recovered/Resolved]
  - Anaemia [Unknown]
  - Exercise tolerance decreased [Recovering/Resolving]
  - Oropharyngeal pain [Recovering/Resolving]
  - Pallor [Unknown]
  - Malaise [Recovering/Resolving]
  - Body temperature increased [Unknown]
  - Odynophagia [Recovering/Resolving]
  - Mucosal inflammation [Not Recovered/Not Resolved]
  - Dysphagia [Recovering/Resolving]
  - Asthenia [Unknown]
  - Gingivitis [Recovered/Resolved]
  - Circulatory collapse [Unknown]

NARRATIVE: CASE EVENT DATE: 2020
